FAERS Safety Report 12846759 (Version 1)
Quarter: 2016Q4

REPORT INFORMATION
  Report Type: Spontaneous
  Country: US (occurrence: US)
  Receive Date: 20161014
  Receipt Date: 20161014
  Transmission Date: 20170207
  Serious: No
  Sender: FDA-Public Use
  Company Number: US-PFIZER INC-2016476557

PATIENT
  Age: 73 Year
  Sex: Male
  Weight: 83.91 kg

DRUGS (2)
  1. LISINOPRIL. [Concomitant]
     Active Substance: LISINOPRIL
     Indication: HYPERTENSION
     Dosage: 10 MG, DAILY
     Route: 048
  2. ADVIL [Suspect]
     Active Substance: IBUPROFEN
     Indication: UPPER LIMB FRACTURE
     Dosage: 400 MG, 3X/DAY
     Route: 048
     Dates: start: 201609, end: 201610

REACTIONS (1)
  - Hypertension [Not Recovered/Not Resolved]
